FAERS Safety Report 8447664-3 (Version None)
Quarter: 2012Q2

REPORT INFORMATION
  Report Type: 
  Country: None (occurrence: None)
  Receive Date: 20120619
  Receipt Date: 20120618
  Transmission Date: 20120825
  Serious: Yes (Other)
  Sender: FDA-Public Use
  Company Number: US-PFIZER INC-2012146192

PATIENT
  Age: 11 Year
  Sex: Female
  Weight: 27.2 kg

DRUGS (1)
  1. CHILDREN'S ADVIL [Suspect]
     Dosage: UNK, TWICE
     Route: 048
     Dates: start: 20120101, end: 20120601

REACTIONS (1)
  - CONVULSION [None]
